FAERS Safety Report 10133573 (Version 3)
Quarter: 2016Q4

REPORT INFORMATION
  Report Type: Spontaneous
  Country: US (occurrence: US)
  Receive Date: 20140428
  Receipt Date: 20161102
  Transmission Date: 20170206
  Serious: Yes (Hospitalization)
  Sender: FDA-Public Use
  Company Number: US-GLAXOSMITHKLINE-A1070880A

PATIENT
  Age: 69 Year
  Sex: Female

DRUGS (18)
  1. ANORO ELLIPTA [Suspect]
     Active Substance: UMECLIDINIUM BROMIDE\VILANTEROL TRIFENATATE
     Indication: CHRONIC OBSTRUCTIVE PULMONARY DISEASE
     Dosage: 1 PUFF(S), 1D
  2. DURAGESIC [Concomitant]
     Active Substance: FENTANYL
     Route: 061
  3. ZYRTEC [Concomitant]
     Active Substance: CETIRIZINE HYDROCHLORIDE
     Indication: MULTIPLE ALLERGIES
  4. CLONAZEPAM. [Concomitant]
     Active Substance: CLONAZEPAM
  5. ZOLPIDEM [Concomitant]
     Active Substance: ZOLPIDEM\ZOLPIDEM TARTRATE
     Dosage: AT NIGHT
  6. BREO ELLIPTA [Suspect]
     Active Substance: FLUTICASONE FUROATE\VILANTEROL TRIFENATATE
     Indication: CHRONIC OBSTRUCTIVE PULMONARY DISEASE
     Route: 055
     Dates: start: 201312
  7. NASONEX [Concomitant]
     Active Substance: MOMETASONE FUROATE
     Dosage: 2 SPRAYS EACH NOSTRIL DAILY
  8. BIOTIN [Concomitant]
     Active Substance: BIOTIN
  9. TAMSULOSIN [Concomitant]
     Active Substance: TAMSULOSIN
  10. NEXIUM [Concomitant]
     Active Substance: ESOMEPRAZOLE MAGNESIUM
  11. METOPROLOL. [Concomitant]
     Active Substance: METOPROLOL
  12. ALLOPURINOL. [Concomitant]
     Active Substance: ALLOPURINOL
     Indication: GOUT
  13. BREO ELLIPTA [Suspect]
     Active Substance: FLUTICASONE FUROATE\VILANTEROL TRIFENATATE
     Indication: ASTHMA
     Dosage: 1 PUFF(S), 1D
  14. BREO ELLIPTA [Suspect]
     Active Substance: FLUTICASONE FUROATE\VILANTEROL TRIFENATATE
     Indication: BRONCHITIS
  15. ANORO ELLIPTA [Suspect]
     Active Substance: UMECLIDINIUM BROMIDE\VILANTEROL TRIFENATATE
     Indication: ASTHMA
  16. SALBUTAMOL / IPRATROPIUM [Concomitant]
  17. CEPHALEXIN. [Concomitant]
     Active Substance: CEPHALEXIN
  18. CARAFATE [Concomitant]
     Active Substance: SUCRALFATE

REACTIONS (3)
  - Intercepted drug prescribing error [Unknown]
  - Labelled drug-drug interaction medication error [Unknown]
  - Dyspnoea [Unknown]

NARRATIVE: CASE EVENT DATE: 201312
